FAERS Safety Report 7754156-3 (Version None)
Quarter: 2011Q3

REPORT INFORMATION
  Report Type: 
  Country: None (occurrence: None)
  Receive Date: 20110915
  Receipt Date: 20110913
  Transmission Date: 20111222
  Serious: No
  Sender: FDA-Public Use
  Company Number: US-PFIZER INC-2004054333

PATIENT
  Sex: Female
  Weight: 64 kg

DRUGS (2)
  1. LIPITOR [Suspect]
     Indication: BLOOD CHOLESTEROL
     Route: 048
  2. CELECOXIB [Concomitant]
     Route: 065

REACTIONS (1)
  - SWELLING [None]
